FAERS Safety Report 14908761 (Version 1)
Quarter: 2018Q2

REPORT INFORMATION
  Report Type: Spontaneous
  Country: US (occurrence: US)
  Receive Date: 20180430
  Receipt Date: 20180430
  Transmission Date: 20180711
  Serious: Yes (Other)
  Sender: FDA-Public Use
  Company Number: None

PATIENT
  Age: 73 Year
  Sex: Male

DRUGS (2)
  1. EYLEA [Concomitant]
     Active Substance: AFLIBERCEPT
     Dates: start: 20171208, end: 20180426
  2. EYLEA [Suspect]
     Active Substance: AFLIBERCEPT
     Indication: NEOVASCULAR AGE-RELATED MACULAR DEGENERATION
     Dosage: ?          OTHER ROUTE:INTRAVITREAL?
     Dates: start: 20171208, end: 20180426

REACTIONS (2)
  - Feeling abnormal [None]
  - Visual impairment [None]

NARRATIVE: CASE EVENT DATE: 20180427
